FAERS Safety Report 20688301 (Version 2)
Quarter: 2022Q2

REPORT INFORMATION
  Report Type: Spontaneous
  Country: US (occurrence: US)
  Receive Date: 20220408
  Receipt Date: 20220414
  Transmission Date: 20220721
  Serious: No
  Sender: FDA-Public Use
  Company Number: US-NOVARTISTESTPH-NVSC2022US079689

PATIENT
  Sex: Female

DRUGS (2)
  1. COMBIPATCH [Suspect]
     Active Substance: ESTRADIOL\NORETHINDRONE ACETATE
     Indication: Product used for unknown indication
     Dosage: UNK 0.05/0.14MG, EVERY 3-4 DAYS
     Route: 062
  2. COMBIPATCH [Suspect]
     Active Substance: ESTRADIOL\NORETHINDRONE ACETATE
     Dosage: UNK 0.05/0.14MG, EVERY 3-4 DAYS (SECOND BOX FROM THE THREE MONTHS SUPPLY)
     Route: 062
     Dates: start: 202202

REACTIONS (3)
  - Product adhesion issue [Unknown]
  - Device issue [Unknown]
  - Product storage error [Not Recovered/Not Resolved]

NARRATIVE: CASE EVENT DATE: 20220201
